FAERS Safety Report 7609416-3 (Version None)
Quarter: 2011Q3

REPORT INFORMATION
  Report Type: 
  Country: None (occurrence: None)
  Receive Date: 20110713
  Receipt Date: 20110713
  Transmission Date: 20111222
  Serious: Yes (Life-Threatening)
  Sender: FDA-Public Use
  Company Number: None

PATIENT
  Sex: Male
  Weight: 100.6985 kg

DRUGS (2)
  1. LAPATINIB [Suspect]
     Indication: EPENDYMOMA
     Dosage: 1000 MG QD PO
     Route: 048
     Dates: start: 20110611, end: 20110703
  2. TEMOZOLOMIDE [Suspect]
     Indication: EPENDYMOMA
     Dosage: 260 MG QD D1-7, D15-21 PO
     Route: 048
     Dates: start: 20110611, end: 20110703

REACTIONS (3)
  - PLATELET COUNT DECREASED [None]
  - DRUG ERUPTION [None]
  - NEUTROPHIL COUNT DECREASED [None]
